FAERS Safety Report 9234189 (Version 2)
Quarter: 2013Q2

REPORT INFORMATION
  Report Type: Spontaneous
  Country: GB (occurrence: GB)
  Receive Date: 20130416
  Receipt Date: 20130625
  Transmission Date: 20140414
  Serious: Yes (Disabling, Other)
  Sender: FDA-Public Use
  Company Number: GB-ROCHE-1213220

PATIENT
  Age: 57 Year
  Sex: Female

DRUGS (10)
  1. MABTHERA [Suspect]
     Indication: RHEUMATOID ARTHRITIS
     Dosage: EVERY 6/12
     Route: 041
     Dates: start: 20120120
  2. MABTHERA [Suspect]
     Dosage: COURSE 1
     Route: 041
     Dates: start: 20120319
  3. MABTHERA [Suspect]
     Route: 041
     Dates: start: 20120402
  4. MABTHERA [Suspect]
     Route: 041
     Dates: start: 20130205
  5. MABTHERA [Suspect]
     Route: 041
     Dates: start: 20130220, end: 20130410
  6. METHOTREXATE [Concomitant]
     Indication: RHEUMATOID ARTHRITIS
     Route: 048
  7. FOLIC ACID [Concomitant]
     Dosage: 5MG DAILY ON 6 OTHER DAYS
     Route: 048
  8. OMEPRAZOLE [Concomitant]
     Route: 048
  9. TRAMADOL [Concomitant]
  10. VITAMIN D3 [Concomitant]

REACTIONS (2)
  - Dyshidrotic eczema [Recovering/Resolving]
  - Eczema nummular [Recovered/Resolved]
